FAERS Safety Report 14890615 (Version 1)
Quarter: 2018Q2

REPORT INFORMATION
  Report Type: Spontaneous
  Country: MA (occurrence: MA)
  Receive Date: 20180514
  Receipt Date: 20180514
  Transmission Date: 20180711
  Serious: Yes (Hospitalization)
  Sender: FDA-Public Use
  Company Number: MA-NOVAST LABORATORIES, LTD-MA-2018NOV000207

PATIENT
  Age: 12 Year
  Sex: Male

DRUGS (7)
  1. CARISOPRODOL\ASPIRIN [Suspect]
     Active Substance: ASPIRIN\CARISOPRODOL
     Indication: SKIN LESION
  2. AMOXICILLIN. [Suspect]
     Active Substance: AMOXICILLIN
     Indication: CHEILITIS
  3. AMOXICILLIN. [Suspect]
     Active Substance: AMOXICILLIN
     Indication: INFLUENZA LIKE ILLNESS
  4. CARBAMAZEPINE. [Suspect]
     Active Substance: CARBAMAZEPINE
     Indication: PRODUCT USED FOR UNKNOWN INDICATION
  5. AMOXICILLIN. [Suspect]
     Active Substance: AMOXICILLIN
     Indication: CONJUNCTIVITIS
  6. CARISOPRODOL\ASPIRIN [Suspect]
     Active Substance: ASPIRIN\CARISOPRODOL
     Indication: PYREXIA
     Dosage: UNK
  7. CARISOPRODOL\ASPIRIN [Suspect]
     Active Substance: ASPIRIN\CARISOPRODOL
     Indication: ERYTHEMA

REACTIONS (2)
  - Toxic epidermal necrolysis [Recovering/Resolving]
  - Drug interaction [Recovering/Resolving]
